FAERS Safety Report 10774577 (Version 1)
Quarter: 2015Q1

REPORT INFORMATION
  Report Type: Spontaneous
  Country: CA (occurrence: None)
  Receive Date: 20150126
  Receipt Date: 20150126
  Transmission Date: 20150721
  Serious: Yes (Life-Threatening)
  Sender: FDA-Public Use
  Company Number: CA-145603

PATIENT
  Age: 84 Year
  Sex: Male

DRUGS (1)
  1. WINRHO SDF LIQUID [Suspect]
     Active Substance: HUMAN RHO(D) IMMUNE GLOBULIN
     Dates: start: 20141024, end: 20141024

REACTIONS (8)
  - Hypotension [None]
  - Loss of consciousness [None]
  - Dyspnoea [None]
  - Chills [None]
  - Haemolysis [None]
  - Haemoglobin decreased [None]
  - Cyanosis [None]
  - Myocardial ischaemia [None]

NARRATIVE: CASE EVENT DATE: 20141024
